FAERS Safety Report 8066266-4 (Version None)
Quarter: 2012Q1

REPORT INFORMATION
  Report Type: 
  Country: None (occurrence: None)
  Receive Date: 20120117
  Receipt Date: 20120103
  Transmission Date: 20120608
  Serious: Yes (Other)
  Sender: FDA-Public Use
  Company Number: NGX_00711_2011

PATIENT
  Sex: Male
  Weight: 82 kg

DRUGS (4)
  1. CYMBALTA [Concomitant]
  2. FENTANYL [Concomitant]
  3. QUTENZA [Suspect]
     Indication: POST HERPETIC NEURALGIA
     Dosage: (0.25 DF, [PATCH, APPLIED TO THE LEFT TEMPLE] TOPICAL)
     Route: 061
     Dates: start: 20111123, end: 20111123
  4. LYRICA [Concomitant]

REACTIONS (2)
  - APPLICATION SITE PAIN [None]
  - APPLICATION SITE ERYTHEMA [None]
